FAERS Safety Report 4759216-7 (Version None)
Quarter: 2005Q3

REPORT INFORMATION
  Report Type: 
  Country: None (occurrence: None)
  Receive Date: 20050831
  Receipt Date: 20050824
  Transmission Date: 20060218
  Serious: Yes (Other)
  Sender: FDA-Public Use
  Company Number: 200510085BSV

PATIENT
  Age: 62 Year
  Sex: Male

DRUGS (1)
  1. LEVITRA [Suspect]
     Indication: ERECTILE DYSFUNCTION
     Dosage: 1.25-2.5 MG, BIW , ORAL
     Route: 048
     Dates: start: 20050327, end: 20050615

REACTIONS (2)
  - DIZZINESS [None]
  - VISUAL DISTURBANCE [None]
